FAERS Safety Report 5495356-5 (Version None)
Quarter: 2007Q4

REPORT INFORMATION
  Report Type: 
  Country: None (occurrence: None)
  Receive Date: 20071024
  Receipt Date: 20071023
  Transmission Date: 20080405
  Serious: Yes (Hospitalization)
  Sender: FDA-Public Use
  Company Number: CH-MERCK-0709CHE00003

PATIENT
  Age: 82 Year
  Sex: Male
  Weight: 83 kg

DRUGS (6)
  1. VYTORIN [Suspect]
     Indication: CARDIOVASCULAR DISORDER
     Route: 048
     Dates: start: 20060504, end: 20070920
  2. ASPIRIN [Concomitant]
     Indication: CARDIOVASCULAR DISORDER
     Route: 048
     Dates: end: 20070803
  3. BISOPROLOL FUMARATE [Concomitant]
     Indication: HYPERTENSION
     Route: 048
     Dates: end: 20070803
  4. CILAZAPRIL [Concomitant]
     Indication: HYPERTENSION
     Route: 048
     Dates: end: 20070803
  5. PHENPROCOUMON [Concomitant]
     Route: 065
     Dates: start: 20070803
  6. AMLODIPINE BESYLATE [Concomitant]
     Indication: HYPERTENSION
     Route: 048
     Dates: start: 20070803

REACTIONS (2)
  - CEREBRAL ISCHAEMIA [None]
  - MONOPLEGIA [None]
